FAERS Safety Report 7541298-0 (Version None)
Quarter: 2011Q2

REPORT INFORMATION
  Report Type: 
  Country: None (occurrence: None)
  Receive Date: 20110610
  Receipt Date: 20110531
  Transmission Date: 20111010
  Serious: Yes (Other)
  Sender: FDA-Public Use
  Company Number: JP-CELGENEUS-087-21880-10120471

PATIENT
  Sex: Male
  Weight: 62.5 kg

DRUGS (42)
  1. REVLIMID [Suspect]
     Dosage: 15 MILLIGRAM
     Route: 048
     Dates: start: 20101221, end: 20110102
  2. OXYCONTIN [Concomitant]
     Indication: CANCER PAIN
     Dosage: 10 MILLIGRAM
     Route: 048
     Dates: start: 20100908, end: 20101004
  3. OMEPRAZOLE [Concomitant]
     Indication: PROPHYLAXIS
     Dosage: 20 MILLIGRAM
     Route: 048
     Dates: start: 20100901, end: 20100921
  4. LIPITOR [Concomitant]
     Indication: HYPERLIPIDAEMIA
     Dosage: 10 MILLIGRAM
     Route: 048
     Dates: start: 20100901, end: 20100921
  5. CARVEDILOL [Concomitant]
     Dosage: 2.5 MILLIGRAM
     Route: 048
     Dates: start: 20101129, end: 20110227
  6. DORIPENEM MONOHYDRATE [Concomitant]
     Dosage: 1 GRAM
     Route: 041
     Dates: start: 20101105, end: 20101116
  7. IMMUNE GLOBULIN INTRAVENOUS (HUMAN) [Concomitant]
     Indication: PNEUMONIA
     Dosage: 5 GRAM
     Route: 041
     Dates: start: 20101022, end: 20101024
  8. REVLIMID [Suspect]
     Indication: MULTIPLE MYELOMA
     Dosage: 15 MILLIGRAM
     Route: 048
     Dates: start: 20100901, end: 20100907
  9. FUNGUARD [Concomitant]
     Indication: PNEUMONIA
     Dosage: 150 MILLIGRAM
     Route: 041
     Dates: start: 20100901, end: 20100921
  10. OMEGACIN [Concomitant]
     Indication: PNEUMONIA
     Dosage: .6 GRAM
     Route: 051
     Dates: start: 20100916, end: 20100921
  11. TARGOCID [Concomitant]
     Dosage: 200 MILLIGRAM
     Route: 041
     Dates: start: 20101007, end: 20101013
  12. REVLIMID [Suspect]
     Dosage: 20 MILLIGRAM
     Route: 048
     Dates: start: 20101129, end: 20101210
  13. DECADRON [Suspect]
     Route: 065
  14. ZYVOX [Concomitant]
     Dosage: 1200 MILLIGRAM
     Route: 048
     Dates: start: 20100929, end: 20101001
  15. OMEPRAZOLE [Concomitant]
     Dosage: 20 MILLIGRAM
     Route: 048
     Dates: start: 20101129, end: 20110227
  16. TENORMIN [Concomitant]
     Indication: HYPERTENSION
     Dosage: 25 MILLIGRAM
     Route: 048
     Dates: start: 20100901, end: 20100921
  17. KREMEZIN [Concomitant]
     Indication: RENAL IMPAIRMENT
     Dosage: 6 GRAM
     Route: 048
     Dates: start: 20100901, end: 20100921
  18. DORIPENEM MONOHYDRATE [Concomitant]
     Indication: PNEUMONIA
     Dosage: .5 GRAM
     Route: 041
     Dates: start: 20101001, end: 20101013
  19. ZOMETA [Concomitant]
     Indication: MULTIPLE MYELOMA
     Dosage: 4 MILLIGRAM
     Route: 041
     Dates: start: 20101108, end: 20101108
  20. LIPITOR [Concomitant]
     Dosage: 10 MILLIGRAM
     Route: 048
     Dates: start: 20101129, end: 20110227
  21. URALYT [Concomitant]
     Dosage: .5 GRAM
     Route: 048
     Dates: start: 20100929, end: 20101116
  22. URALYT [Concomitant]
     Dosage: .5 GRAM
     Route: 048
     Dates: start: 20101129, end: 20110227
  23. CARVEDILOL [Concomitant]
     Indication: HYPERTENSION
     Dosage: 2.5 MILLIGRAM
     Route: 048
     Dates: start: 20101026, end: 20101116
  24. REVLIMID [Suspect]
     Dosage: 15 MILLIGRAM
     Route: 048
     Dates: start: 20100911, end: 20100921
  25. REVLIMID [Suspect]
     Dosage: 10 MILLIGRAM
     Route: 048
     Dates: start: 20100929, end: 20101019
  26. ZYVOX [Concomitant]
     Indication: PNEUMONIA
     Dosage: 1200 MILLIGRAM
     Route: 048
     Dates: start: 20100906, end: 20100921
  27. ZYVOX [Concomitant]
     Dosage: 1200 MILLIGRAM
     Route: 048
     Dates: start: 20101014, end: 20101105
  28. FIRSTCIN [Concomitant]
     Dosage: 2 GRAM
     Route: 041
     Dates: start: 20101014, end: 20101021
  29. REVLIMID [Suspect]
     Dosage: 15 MILLIGRAM
     Route: 048
     Dates: start: 20100927, end: 20101116
  30. DEXAMETHASONE [Concomitant]
     Indication: MULTIPLE MYELOMA
     Dosage: 33 MILLIGRAM
     Route: 041
     Dates: start: 20100901, end: 20100904
  31. DEXAMETHASONE [Concomitant]
     Dosage: 33 MILLIGRAM
     Route: 041
     Dates: start: 20100909, end: 20100912
  32. OXYCONTIN [Concomitant]
     Indication: MULTIPLE MYELOMA
  33. LIPITOR [Concomitant]
     Dosage: 10 MILLIGRAM
     Route: 048
     Dates: start: 20100929, end: 20101116
  34. ESPO [Concomitant]
     Indication: NEPHROGENIC ANAEMIA
     Dosage: 6000 UNIT
     Route: 058
     Dates: start: 20100907, end: 20100921
  35. REVLIMID [Suspect]
     Dosage: 15 MILLIGRAM
     Route: 048
     Dates: start: 20110117, end: 20110206
  36. FUNGUARD [Concomitant]
     Dosage: 150 MILLIGRAM
     Route: 041
     Dates: start: 20101019, end: 20101116
  37. SOLDACTONE [Concomitant]
     Indication: NEPHROGENIC ANAEMIA
     Dosage: 200 MILLIGRAM
     Route: 051
     Dates: start: 20100912, end: 20100918
  38. OMEGACIN [Concomitant]
     Dosage: 1.2 GRAM
     Route: 051
     Dates: start: 20101022, end: 20101104
  39. FIRSTCIN [Concomitant]
     Indication: PNEUMONIA
     Dosage: 2 GRAM
     Route: 041
     Dates: start: 20100929, end: 20100930
  40. TARGOCID [Concomitant]
     Indication: PNEUMONIA
     Dosage: 400 MILLIGRAM
     Route: 041
     Dates: start: 20101006, end: 20101006
  41. OMEPRAZOLE [Concomitant]
     Dosage: 20 MILLIGRAM
     Route: 048
     Dates: start: 20100929, end: 20101116
  42. URALYT [Concomitant]
     Indication: HYPERURICAEMIA
     Dosage: .5 GRAM
     Route: 048
     Dates: start: 20100901, end: 20100921

REACTIONS (11)
  - HAEMOGLOBIN DECREASED [None]
  - RENAL DISORDER [None]
  - HYPOCALCAEMIA [None]
  - FEBRILE NEUTROPENIA [None]
  - C-REACTIVE PROTEIN INCREASED [None]
  - HYPERBILIRUBINAEMIA [None]
  - TREMOR [None]
  - PLATELET COUNT DECREASED [None]
  - GLUCOSE TOLERANCE IMPAIRED [None]
  - BLOOD CREATININE INCREASED [None]
  - THROMBOCYTOPENIA [None]
